FAERS Safety Report 13237285 (Version 2)
Quarter: 2017Q1

REPORT INFORMATION
  Report Type: Report from Study
  Country: None (occurrence: BR)
  Receive Date: 20170215
  Receipt Date: 20170216
  Transmission Date: 20170428
  Serious: Yes (Other)
  Sender: FDA-Public Use
  Company Number: BR-ABBVIE-17P-020-1872547-00

PATIENT
  Age: 69 Year
  Sex: Female
  Weight: 79 kg

DRUGS (1)
  1. HUMIRA [Suspect]
     Active Substance: ADALIMUMAB
     Indication: PSORIATIC ARTHROPATHY
     Route: 058
     Dates: start: 20140509

REACTIONS (8)
  - Varicose vein [Recovered/Resolved]
  - Rib fracture [Recovered/Resolved]
  - Limb injury [Recovered/Resolved]
  - Abdominal injury [Recovered/Resolved]
  - Contusion [Recovered/Resolved]
  - Facial bones fracture [Recovered/Resolved]
  - Joint injury [Recovered/Resolved]
  - Inflammation [Recovered/Resolved]

NARRATIVE: CASE EVENT DATE: 201609
